FAERS Safety Report 12348945 (Version 1)
Quarter: 2016Q2

REPORT INFORMATION
  Report Type: Not Available
  Country: None (occurrence: US)
  Receive Date: 20160509
  Receipt Date: 20160509
  Transmission Date: 20160815
  Serious: No
  Sender: FDA-Public Use
  Company Number: US-AKORN-29769

PATIENT
  Sex: Female

DRUGS (1)
  1. TIMOLOL MALEATE. [Suspect]
     Active Substance: TIMOLOL MALEATE

REACTIONS (6)
  - Weight decreased [Unknown]
  - Rhinorrhoea [Unknown]
  - Decreased appetite [Unknown]
  - Anosmia [Unknown]
  - Dry eye [Unknown]
  - Ageusia [Unknown]
